FAERS Safety Report 5773913-6 (Version None)
Quarter: 2008Q2

REPORT INFORMATION
  Report Type: 
  Country: None (occurrence: None)
  Receive Date: 20080616
  Receipt Date: 20080609
  Transmission Date: 20081010
  Serious: Yes (Hospitalization)
  Sender: FDA-Public Use
  Company Number: B0523340B

PATIENT
  Age: 59 Year
  Sex: Female
  Weight: 80.4 kg

DRUGS (2)
  1. LAPATINIB [Suspect]
     Dosage: 1250MG PER DAY
     Route: 048
     Dates: start: 20071217
  2. CAPECITABINE [Suspect]
     Dosage: 500MG TWICE PER DAY
     Route: 048
     Dates: start: 20071217

REACTIONS (1)
  - DYSPNOEA [None]
